FAERS Safety Report 17705831 (Version 1)
Quarter: 2020Q2

REPORT INFORMATION
  Report Type: Spontaneous
  Country: IT (occurrence: IT)
  Receive Date: 20200424
  Receipt Date: 20200424
  Transmission Date: 20200714
  Serious: Yes (Other)
  Sender: FDA-Public Use
  Company Number: IT-MYLANLABS-2020M1040790

PATIENT
  Age: 75 Year
  Sex: Female

DRUGS (1)
  1. CISPLATIN. [Suspect]
     Active Substance: CISPLATIN
     Indication: SQUAMOUS CELL CARCINOMA OF THE VULVA
     Dosage: SHE RECEIVED 5 CYCLES
     Route: 065

REACTIONS (3)
  - Neutropenia [Unknown]
  - Dermatitis [Unknown]
  - Diarrhoea [Unknown]
